FAERS Safety Report 19224893 (Version 1)
Quarter: 2021Q2

REPORT INFORMATION
  Report Type: Spontaneous
  Country: US (occurrence: US)
  Receive Date: 20210505
  Receipt Date: 20210505
  Transmission Date: 20210717
  Serious: No
  Sender: FDA-Public Use
  Company Number: US-ROCHE-2669676

PATIENT
  Sex: Female

DRUGS (1)
  1. ESBRIET [Suspect]
     Active Substance: PIRFENIDONE
     Indication: INTERSTITIAL LUNG DISEASE
     Dosage: 1 TABLET 3 TIMES A DAY, 2 TABLETS 3 TIMES A DAY FOR 7 DAYS, THEN 3 TABLETS 3 TIMES A DAY THEREAFTER
     Route: 048
     Dates: start: 202008

REACTIONS (1)
  - Decreased appetite [Unknown]
